FAERS Safety Report 23359905 (Version 1)
Quarter: 2024Q1

REPORT INFORMATION
  Report Type: Other
  Country: CN (occurrence: None)
  Receive Date: 20240103
  Receipt Date: 20240103
  Transmission Date: 20240410
  Serious: Yes (Other)
  Sender: FDA-Public Use
  Company Number: CN-ROCHE-3483588

PATIENT

DRUGS (2)
  1. MYCOPHENOLATE MOFETIL [Suspect]
     Active Substance: MYCOPHENOLATE MOFETIL
     Indication: IgA nephropathy
     Route: 065
  2. PREDNISONE [Suspect]
     Active Substance: PREDNISONE
     Indication: IgA nephropathy
     Route: 065

REACTIONS (8)
  - Infection [Unknown]
  - Liver injury [Unknown]
  - Gastrointestinal disorder [Unknown]
  - Anaemia [Unknown]
  - Pneumonia [Unknown]
  - Hypertransaminasaemia [Unknown]
  - Leukopenia [Unknown]
  - Diabetes mellitus [Unknown]
